FAERS Safety Report 21216452 (Version 1)
Quarter: 2022Q3

REPORT INFORMATION
  Report Type: Spontaneous
  Country: US (occurrence: US)
  Receive Date: 20220816
  Receipt Date: 20220816
  Transmission Date: 20221026
  Serious: No
  Sender: FDA-Public Use
  Company Number: US-PFIZER INC-202201060162

PATIENT

DRUGS (1)
  1. LATANOPROST [Suspect]
     Active Substance: LATANOPROST
     Dosage: UNK

REACTIONS (1)
  - Ocular hyperaemia [Not Recovered/Not Resolved]
